FAERS Safety Report 5335654-9 (Version None)
Quarter: 2007Q2

REPORT INFORMATION
  Report Type: 
  Country: None (occurrence: None)
  Receive Date: 20070322
  Receipt Date: 20070124
  Transmission Date: 20071010
  Serious: No
  Sender: FDA-Public Use
  Company Number: 2006US002873

PATIENT
  Age: 86 Year
  Sex: Female

DRUGS (3)
  1. VESICARE [Suspect]
     Indication: INCONTINENCE
     Dosage: 5 MG, BID, ORAL
     Route: 048
  2. CODEINE SUL TAB [Concomitant]
  3. KEFLEX [Concomitant]

REACTIONS (1)
  - PALPITATIONS [None]
